FAERS Safety Report 23634507 (Version 1)
Quarter: 2024Q1

REPORT INFORMATION
  Report Type: Spontaneous
  Country: US (occurrence: US)
  Receive Date: 20240315
  Receipt Date: 20240315
  Transmission Date: 20240410
  Serious: Yes (Other)
  Sender: FDA-Public Use
  Company Number: US-TEYRO-2024-TY-000044

PATIENT
  Age: 3 Year
  Sex: Female

DRUGS (10)
  1. TOPOTECAN [Suspect]
     Active Substance: TOPOTECAN HYDROCHLORIDE
     Indication: Retinoblastoma
     Dosage: 3 CYCLES, INTRA-ARTERIAL
     Route: 013
  2. TOPOTECAN [Suspect]
     Active Substance: TOPOTECAN HYDROCHLORIDE
     Dosage: 20UG VIA INTRAVITREAL USE, ADDITIONAL 7 CYCLES
     Route: 035
  3. TOPOTECAN [Suspect]
     Active Substance: TOPOTECAN HYDROCHLORIDE
     Dosage: CUMULATIVE VIA INTRAVITREAL USE DOSE OF 140UMG
     Route: 035
  4. CARBOPLATIN [Suspect]
     Active Substance: CARBOPLATIN
     Indication: Retinoblastoma
     Dosage: 3 CYCLES, VIA INTRA-ARTERIAL
     Route: 013
  5. MELPHALAN [Suspect]
     Active Substance: MELPHALAN
     Indication: Retinoblastoma
     Dosage: INTRA-ARTERIAL, UNK
     Route: 013
  6. MELPHALAN [Suspect]
     Active Substance: MELPHALAN
     Dosage: 20UG, 7 CYCLES, VIA INTRAVITREAL USE
     Route: 035
  7. MELPHALAN [Suspect]
     Active Substance: MELPHALAN
     Dosage: 3 CYCLES, VIA INTRA-ARTERIAL USE
     Route: 013
  8. MELPHALAN [Suspect]
     Active Substance: MELPHALAN
     Dosage: ONE CYCLE OF 30UG VIA INTRAVITREAL USE
     Route: 035
  9. MELPHALAN [Suspect]
     Active Substance: MELPHALAN
     Dosage: 20UG, VIA INTRAVITREAL USE, ADDITIONAL 7 CYCLES
     Route: 035
  10. MELPHALAN [Suspect]
     Active Substance: MELPHALAN
     Dosage: CUMULATIVE VIA INTRAVITREAL USE DOSE OF TOTALED 310UG
     Route: 035

REACTIONS (2)
  - Retinal tear [Unknown]
  - Off label use [Unknown]
